FAERS Safety Report 18937389 (Version 1)
Quarter: 2021Q1

REPORT INFORMATION
  Report Type: Spontaneous
  Country: FR (occurrence: FR)
  Receive Date: 20210224
  Receipt Date: 20210224
  Transmission Date: 20210420
  Serious: Yes (Other)
  Sender: FDA-Public Use
  Company Number: FR-MYLANLABS-2021M1010656

PATIENT
  Age: 47 Year
  Sex: Male
  Weight: 72 kg

DRUGS (2)
  1. MEROPENEM                          /01250502/ [Suspect]
     Active Substance: MEROPENEM
     Indication: CATHETER SITE INFECTION
     Dosage: 1 GRAM, Q8H
     Route: 042
     Dates: start: 20201216, end: 20201223
  2. PANTOPRAZOLE MYLAN [Suspect]
     Active Substance: PANTOPRAZOLE SODIUM
     Indication: GASTRITIS PROPHYLAXIS
     Dosage: 40 MILLIGRAM, QD
     Route: 048
     Dates: start: 202010, end: 20201223

REACTIONS (3)
  - Cholestasis [Recovering/Resolving]
  - Eosinophilia [Not Recovered/Not Resolved]
  - Rash [Recovered/Resolved]

NARRATIVE: CASE EVENT DATE: 202012
